FAERS Safety Report 15003351 (Version 1)
Quarter: 2018Q2

REPORT INFORMATION
  Report Type: Spontaneous
  Country: TW (occurrence: TW)
  Receive Date: 20180613
  Receipt Date: 20180613
  Transmission Date: 20180711
  Serious: Yes (Death, Other)
  Sender: FDA-Public Use
  Company Number: TW-SUN PHARMACEUTICAL INDUSTRIES LTD-2018RR-175514

PATIENT
  Age: 14 Year
  Sex: Male

DRUGS (8)
  1. ADRIAMYCIN [Suspect]
     Active Substance: DOXORUBICIN HYDROCHLORIDE
     Indication: RENAL NEOPLASM
     Dosage: UNK
     Route: 065
     Dates: start: 20070102
  2. CARBOPLATIN. [Suspect]
     Active Substance: CARBOPLATIN
     Indication: RENAL NEOPLASM
     Dosage: UNK
     Route: 065
  3. TEMOZOLOMIDE. [Suspect]
     Active Substance: TEMOZOLOMIDE
     Indication: RENAL NEOPLASM
     Dosage: UNK
     Route: 065
  4. VINCRISTINE [Suspect]
     Active Substance: VINCRISTINE
     Indication: RENAL NEOPLASM
     Dosage: UNK
     Route: 065
     Dates: start: 20070102, end: 200703
  5. ACTINOMYCIN D [Suspect]
     Active Substance: DACTINOMYCIN
     Indication: RENAL NEOPLASM
     Dosage: UNK
     Route: 065
     Dates: start: 20070102, end: 200703
  6. IRINOTECAN [Suspect]
     Active Substance: IRINOTECAN
     Indication: RENAL NEOPLASM
     Dosage: UNK
     Route: 065
  7. CISPLATIN. [Suspect]
     Active Substance: CISPLATIN
     Indication: RENAL NEOPLASM
     Dosage: UNK
     Route: 065
  8. IFOSFAMIDE. [Suspect]
     Active Substance: IFOSFAMIDE
     Indication: RENAL NEOPLASM
     Dosage: UNK
     Route: 065
     Dates: start: 20070102, end: 200703

REACTIONS (4)
  - Drug ineffective [Unknown]
  - Septic shock [Unknown]
  - Klebsiella infection [Unknown]
  - Toxicity to various agents [Fatal]

NARRATIVE: CASE EVENT DATE: 200801
